FAERS Safety Report 6261498-X (Version None)
Quarter: 2009Q3

REPORT INFORMATION
  Report Type: 
  Country: None (occurrence: None)
  Receive Date: 20090707
  Receipt Date: 20090707
  Transmission Date: 20100115
  Serious: Yes (Life-Threatening, Hospitalization)
  Sender: FDA-Public Use
  Company Number: None

PATIENT
  Age: 12 Year
  Sex: Female
  Weight: 62 kg

DRUGS (1)
  1. PROPYLTHIOURACIL [Suspect]
     Indication: BASEDOW'S DISEASE
     Dosage: 50 MG TID PO
     Route: 048
     Dates: start: 20090115, end: 20090509

REACTIONS (3)
  - ALANINE AMINOTRANSFERASE INCREASED [None]
  - BLOOD BILIRUBIN INCREASED [None]
  - UPPER RESPIRATORY TRACT INFECTION [None]
